FAERS Safety Report 20120079 (Version 3)
Quarter: 2022Q2

REPORT INFORMATION
  Report Type: Spontaneous
  Country: US (occurrence: US)
  Receive Date: 20211126
  Receipt Date: 20220613
  Transmission Date: 20220721
  Serious: Yes (Other)
  Sender: FDA-Public Use
  Company Number: US-PFIZER INC-202101578533

PATIENT
  Age: 51 Year
  Sex: Male
  Weight: 72.57 kg

DRUGS (2)
  1. HYDROXYZINE PAMOATE [Suspect]
     Active Substance: HYDROXYZINE PAMOATE
     Indication: Depression
     Dosage: UNK
  2. HYDROXYZINE PAMOATE [Suspect]
     Active Substance: HYDROXYZINE PAMOATE
     Indication: Pruritus

REACTIONS (5)
  - Hemihypoaesthesia [Unknown]
  - Hemiplegia [Unknown]
  - Somnolence [Unknown]
  - Pruritus [Unknown]
  - Depression [Unknown]

NARRATIVE: CASE EVENT DATE: 20210408
